FAERS Safety Report 9723119 (Version 1)
Quarter: 2013Q4

REPORT INFORMATION
  Report Type: Spontaneous
  Country: US (occurrence: None)
  Receive Date: 20131127
  Receipt Date: 20131127
  Transmission Date: 20140711
  Serious: Yes (Life-Threatening)
  Sender: FDA-Public Use
  Company Number: None

PATIENT
  Age: 66 Year
  Sex: Male

DRUGS (1)
  1. VANCOMYCIN [Suspect]
     Route: 042
     Dates: start: 20130904, end: 20130904

REACTIONS (3)
  - Pulseless electrical activity [None]
  - Anaphylactic reaction [None]
  - Anaphylactoid reaction [None]
